FAERS Safety Report 10475892 (Version 1)
Quarter: 2014Q3

REPORT INFORMATION
  Report Type: Spontaneous
  Country: US (occurrence: US)
  Receive Date: 20140925
  Receipt Date: 20140925
  Transmission Date: 20150326
  Serious: No
  Sender: FDA-Public Use
  Company Number: US-GLAXOSMITHKLINE-A1055794A

PATIENT
  Age: 53 Year
  Sex: Female
  Weight: 85.5 kg

DRUGS (5)
  1. METHENAMINE HIPPURATE. [Concomitant]
     Active Substance: METHENAMINE HIPPURATE
  2. GEMFIBROZIL. [Concomitant]
     Active Substance: GEMFIBROZIL
  3. TEGRETOL-XR [Concomitant]
     Active Substance: CARBAMAZEPINE
  4. TOVIAZ [Concomitant]
     Active Substance: FESOTERODINE FUMARATE
  5. CEFUROXIME AXETIL. [Suspect]
     Active Substance: CEFUROXIME AXETIL
     Indication: URINARY TRACT INFECTION
     Route: 048
     Dates: start: 201311

REACTIONS (2)
  - Nausea [Unknown]
  - Vomiting [Not Recovered/Not Resolved]

NARRATIVE: CASE EVENT DATE: 201311
